FAERS Safety Report 7115087-5 (Version None)
Quarter: 2010Q4

REPORT INFORMATION
  Report Type: 
  Country: None (occurrence: None)
  Receive Date: 20101117
  Receipt Date: 20101117
  Transmission Date: 20110411
  Serious: No
  Sender: FDA-Public Use
  Company Number: None

PATIENT
  Age: 21 Year
  Sex: Male

DRUGS (1)
  1. ADDERALL XR 10 [Suspect]
     Dosage: 10 MG BID PO
     Route: 048
     Dates: start: 20100511, end: 20100526

REACTIONS (5)
  - DECREASED APPETITE [None]
  - DIZZINESS [None]
  - EPISTAXIS [None]
  - HEART RATE INCREASED [None]
  - RASH [None]
